FAERS Safety Report 8290639 (Version 3)
Quarter: 2012Q4

REPORT INFORMATION
  Report Type: 
  Country: US (occurrence: US)
  Receive Date: 20111214
  Receipt Date: 20121129
  Transmission Date: 20130627
  Serious: Yes (Other)
  Sender: FDA-Public Use
  Company Number: US-ASTRAZENECA-2011SE74370

PATIENT
  Age: 84 Year
  Sex: Female

DRUGS (9)
  1. PULMICORT RESPULES [Suspect]
     Route: 055
  2. NEXIUM [Suspect]
     Route: 048
  3. PREDNISONE [Suspect]
     Route: 065
  4. ADVAIR [Concomitant]
  5. ALBUTEROL [Concomitant]
  6. DIOVAN HCT [Concomitant]
  7. PROAIR [Concomitant]
  8. SINGULAIR [Concomitant]
  9. ZOCOR [Concomitant]

REACTIONS (9)
  - Neoplasm malignant [Unknown]
  - Sarcoma [Unknown]
  - Lung neoplasm malignant [Unknown]
  - Asthenia [Unknown]
  - Bronchitis [Unknown]
  - Sleep disorder due to general medical condition, insomnia type [Unknown]
  - Feeling jittery [Unknown]
  - Depressed mood [Unknown]
  - Infection [Unknown]
